FAERS Safety Report 13124078 (Version 2)
Quarter: 2018Q1

REPORT INFORMATION
  Report Type: Report from Study
  Country: GB (occurrence: GB)
  Receive Date: 20170118
  Receipt Date: 20180125
  Transmission Date: 20180508
  Serious: Yes (Hospitalization)
  Sender: FDA-Public Use
  Company Number: GB-ASTRAZENECA-2017SE04575

PATIENT
  Age: 31011 Day
  Sex: Male

DRUGS (2)
  1. AZD2281 [Suspect]
     Active Substance: OLAPARIB
     Indication: OESOPHAGEAL CARCINOMA
     Route: 048
     Dates: start: 20161111, end: 20161216
  2. RADIOTHERAPY [Suspect]
     Active Substance: RADIATION THERAPY
     Indication: OESOPHAGEAL CARCINOMA
     Route: 065

REACTIONS (1)
  - Radiation oesophagitis [Not Recovered/Not Resolved]

NARRATIVE: CASE EVENT DATE: 20161224
